FAERS Safety Report 25532236 (Version 2)
Quarter: 2025Q3

REPORT INFORMATION
  Report Type: Spontaneous
  Country: EU (occurrence: EU)
  Receive Date: 20250709
  Receipt Date: 20250716
  Transmission Date: 20251020
  Serious: Yes (Other)
  Sender: CELLTRION
  Company Number: None

PATIENT

DRUGS (11)
  1. RITUXIMAB [Suspect]
     Active Substance: RITUXIMAB
     Indication: Product used for unknown indication
  2. TOCILIZUMAB [Suspect]
     Active Substance: TOCILIZUMAB
     Indication: Febrile infection-related epilepsy syndrome
     Route: 042
  3. DEXAMETHASONE [Concomitant]
     Active Substance: DEXAMETHASONE
  4. FLUCONAZOLE [Concomitant]
     Active Substance: FLUCONAZOLE
  5. LACOSAMIDE [Concomitant]
     Active Substance: LACOSAMIDE
  6. OMEPRAZOLE [Concomitant]
     Active Substance: OMEPRAZOLE
  7. ENOXAPARIN [Concomitant]
     Active Substance: ENOXAPARIN
  8. FENFLURAMINA [Concomitant]
  9. CANNABIDIOL [Concomitant]
     Active Substance: CANNABIDIOL
  10. GLYCOPYRROLATE [Concomitant]
     Active Substance: GLYCOPYRROLATE
  11. CLONAZEPAM [Concomitant]
     Active Substance: CLONAZEPAM

REACTIONS (2)
  - Hypothyroidism [Not Recovered/Not Resolved]
  - Off label use [Unknown]

NARRATIVE: CASE EVENT DATE: 20250123
